FAERS Safety Report 10446529 (Version 2)
Quarter: 2014Q3

REPORT INFORMATION
  Report Type: Spontaneous
  Country: US (occurrence: US)
  Receive Date: 20140911
  Receipt Date: 20140911
  Transmission Date: 20150326
  Serious: No
  Sender: FDA-Public Use
  Company Number: US-AMGEN-USASP2014042266

PATIENT
  Age: 63 Year
  Sex: Female
  Weight: 78.01 kg

DRUGS (1)
  1. ENBREL [Suspect]
     Active Substance: ETANERCEPT
     Indication: RHEUMATOID ARTHRITIS
     Dosage: 50 MG, QWK
     Route: 058
     Dates: start: 20140402, end: 201406

REACTIONS (5)
  - Injection site reaction [Unknown]
  - Rash erythematous [Unknown]
  - Injection site rash [Unknown]
  - Injection site bruising [Unknown]
  - Urticaria [Unknown]

NARRATIVE: CASE EVENT DATE: 20140523
